FAERS Safety Report 4919377-3 (Version None)
Quarter: 2006Q1

REPORT INFORMATION
  Report Type: 
  Country: None (occurrence: None)
  Receive Date: 20060216
  Receipt Date: 20060206
  Transmission Date: 20060701
  Serious: Yes (Hospitalization, Disabling)
  Sender: FDA-Public Use
  Company Number: AT200602000917

PATIENT
  Sex: Male

DRUGS (3)
  1. GEMZAR [Suspect]
     Indication: NON-SMALL CELL LUNG CANCER
  2. CISPLATIN [Concomitant]
  3. TAXOTERE [Concomitant]

REACTIONS (1)
  - NEPHRITIS INTERSTITIAL [None]
